FAERS Safety Report 7330409-8 (Version None)
Quarter: 2011Q1

REPORT INFORMATION
  Report Type: 
  Country: None (occurrence: None)
  Receive Date: 20110304
  Receipt Date: 20110225
  Transmission Date: 20110831
  Serious: No
  Sender: FDA-Public Use
  Company Number: US-BIOGENIDEC-2010BI044734

PATIENT
  Sex: Female

DRUGS (3)
  1. TYSABRI [Suspect]
     Indication: MULTIPLE SCLEROSIS
     Route: 042
     Dates: start: 20090721
  2. AVONEX [Concomitant]
     Indication: MULTIPLE SCLEROSIS
     Route: 030
     Dates: start: 20080208
  3. AVONEX [Concomitant]
     Route: 030
     Dates: start: 19990801

REACTIONS (8)
  - HERPES ZOSTER [None]
  - OROPHARYNGEAL BLISTERING [None]
  - BACTERIAL INFECTION [None]
  - NEURALGIA [None]
  - BLADDER SPASM [None]
  - PYREXIA [None]
  - NEUROPATHY PERIPHERAL [None]
  - BLOOD URINE PRESENT [None]
